FAERS Safety Report 17192642 (Version 1)
Quarter: 2019Q4

REPORT INFORMATION
  Report Type: Spontaneous
  Country: FR (occurrence: FR)
  Receive Date: 20191223
  Receipt Date: 20191223
  Transmission Date: 20200122
  Serious: Yes (Death)
  Sender: FDA-Public Use
  Company Number: FR-ASTRAZENECA-2019SF85788

PATIENT
  Sex: Female

DRUGS (1)
  1. FASENRA [Suspect]
     Active Substance: BENRALIZUMAB
     Indication: ASTHMA
     Route: 058
     Dates: start: 20191119, end: 20191119

REACTIONS (2)
  - Cardiovascular disorder [Fatal]
  - Fatigue [Recovered/Resolved]

NARRATIVE: CASE EVENT DATE: 20191214
